FAERS Safety Report 8927306 (Version 1)
Quarter: 2012Q4

REPORT INFORMATION
  Report Type: 
  Country: CH (occurrence: CH)
  Receive Date: 20121127
  Receipt Date: 20121127
  Transmission Date: 20130627
  Serious: Yes (Hospitalization)
  Sender: FDA-Public Use
  Company Number: CH-009507513-1211CHE005649

PATIENT
  Age: 29 Year
  Sex: Female

DRUGS (1)
  1. NUVARING [Suspect]
     Indication: CONTRACEPTION
     Dosage: 11.7/2.7 mg
     Route: 067
     Dates: start: 200809

REACTIONS (2)
  - Delivery [Unknown]
  - Unintended pregnancy [Unknown]
